FAERS Safety Report 24875218 (Version 6)
Quarter: 2025Q2

REPORT INFORMATION
  Report Type: Spontaneous
  Country: US (occurrence: US)
  Receive Date: 20250122
  Receipt Date: 20250523
  Transmission Date: 20250716
  Serious: No
  Sender: MYLAN
  Company Number: US-MYLANLABS-2025M1002611

PATIENT

DRUGS (40)
  1. EPINEPHRINE [Suspect]
     Active Substance: EPINEPHRINE
     Indication: Product used for unknown indication
  2. EPINEPHRINE [Suspect]
     Active Substance: EPINEPHRINE
  3. EPINEPHRINE [Suspect]
     Active Substance: EPINEPHRINE
     Route: 065
  4. EPINEPHRINE [Suspect]
     Active Substance: EPINEPHRINE
     Route: 065
  5. EPINEPHRINE [Suspect]
     Active Substance: EPINEPHRINE
     Route: 065
  6. EPINEPHRINE [Suspect]
     Active Substance: EPINEPHRINE
     Route: 065
  7. EPINEPHRINE [Suspect]
     Active Substance: EPINEPHRINE
  8. EPINEPHRINE [Suspect]
     Active Substance: EPINEPHRINE
  9. EPINEPHRINE [Suspect]
     Active Substance: EPINEPHRINE
     Route: 065
  10. EPINEPHRINE [Suspect]
     Active Substance: EPINEPHRINE
     Route: 065
  11. EPINEPHRINE [Suspect]
     Active Substance: EPINEPHRINE
  12. EPINEPHRINE [Suspect]
     Active Substance: EPINEPHRINE
  13. EPINEPHRINE [Suspect]
     Active Substance: EPINEPHRINE
  14. EPINEPHRINE [Suspect]
     Active Substance: EPINEPHRINE
     Route: 065
  15. EPINEPHRINE [Suspect]
     Active Substance: EPINEPHRINE
     Route: 065
  16. EPINEPHRINE [Suspect]
     Active Substance: EPINEPHRINE
  17. EPINEPHRINE [Suspect]
     Active Substance: EPINEPHRINE
  18. EPINEPHRINE [Suspect]
     Active Substance: EPINEPHRINE
  19. EPINEPHRINE [Suspect]
     Active Substance: EPINEPHRINE
     Route: 065
  20. EPINEPHRINE [Suspect]
     Active Substance: EPINEPHRINE
     Route: 065
  21. EPINEPHRINE [Suspect]
     Active Substance: EPINEPHRINE
     Route: 065
  22. EPINEPHRINE [Suspect]
     Active Substance: EPINEPHRINE
     Route: 065
  23. EPINEPHRINE [Suspect]
     Active Substance: EPINEPHRINE
  24. EPINEPHRINE [Suspect]
     Active Substance: EPINEPHRINE
  25. EPINEPHRINE [Suspect]
     Active Substance: EPINEPHRINE
     Route: 065
  26. EPINEPHRINE [Suspect]
     Active Substance: EPINEPHRINE
  27. EPINEPHRINE [Suspect]
     Active Substance: EPINEPHRINE
  28. EPINEPHRINE [Suspect]
     Active Substance: EPINEPHRINE
     Route: 065
  29. EPINEPHRINE [Suspect]
     Active Substance: EPINEPHRINE
     Indication: Product used for unknown indication
  30. EPINEPHRINE [Suspect]
     Active Substance: EPINEPHRINE
  31. EPINEPHRINE [Suspect]
     Active Substance: EPINEPHRINE
     Route: 065
  32. EPINEPHRINE [Suspect]
     Active Substance: EPINEPHRINE
     Route: 065
  33. EPINEPHRINE [Suspect]
     Active Substance: EPINEPHRINE
  34. EPINEPHRINE [Suspect]
     Active Substance: EPINEPHRINE
  35. EPINEPHRINE [Suspect]
     Active Substance: EPINEPHRINE
     Route: 065
  36. EPINEPHRINE [Suspect]
     Active Substance: EPINEPHRINE
     Route: 065
  37. EPINEPHRINE [Suspect]
     Active Substance: EPINEPHRINE
  38. EPINEPHRINE [Suspect]
     Active Substance: EPINEPHRINE
     Route: 065
  39. EPINEPHRINE [Suspect]
     Active Substance: EPINEPHRINE
  40. EPINEPHRINE [Suspect]
     Active Substance: EPINEPHRINE
     Route: 065

REACTIONS (2)
  - Liquid product physical issue [Unknown]
  - Product quality issue [Unknown]

NARRATIVE: CASE EVENT DATE: 20250101
